FAERS Safety Report 5349255-X (Version None)
Quarter: 2007Q2

REPORT INFORMATION
  Report Type: 
  Country: None (occurrence: None)
  Receive Date: 20070607
  Receipt Date: 20070528
  Transmission Date: 20071010
  Serious: Yes (Hospitalization)
  Sender: FDA-Public Use
  Company Number: JP-ASTRAZENECA-2007AP02027

PATIENT
  Age: 31352 Day
  Sex: Female

DRUGS (2)
  1. CRESTOR [Suspect]
     Indication: HYPERLIPIDAEMIA
     Route: 048
     Dates: start: 20061213, end: 20070116
  2. FENYTAREN [Concomitant]
     Indication: PAIN
     Route: 051
     Dates: start: 20060928

REACTIONS (1)
  - MYOPATHY [None]
